FAERS Safety Report 19658763 (Version 7)
Quarter: 2021Q4

REPORT INFORMATION
  Report Type: Report from Study
  Country: US (occurrence: US)
  Receive Date: 20210804
  Receipt Date: 20211007
  Transmission Date: 20220304
  Serious: Yes (Hospitalization)
  Sender: FDA-Public Use
  Company Number: US-NOVARTISPH-NVSC2021US174848

PATIENT
  Sex: Female

DRUGS (2)
  1. PIQRAY [Suspect]
     Active Substance: ALPELISIB
     Indication: Breast cancer
     Dosage: UNK
     Route: 065
  2. PIQRAY [Suspect]
     Active Substance: ALPELISIB
     Dosage: 250 MG, QD
     Route: 065

REACTIONS (11)
  - Hypersensitivity [Unknown]
  - Adverse drug reaction [Unknown]
  - Heart rate increased [Unknown]
  - Hypotension [Unknown]
  - Dehydration [Unknown]
  - Pyrexia [Unknown]
  - Vomiting [Unknown]
  - Diarrhoea [Unknown]
  - Stress [Unknown]
  - Depression [Unknown]
  - Rash [Unknown]
